FAERS Safety Report 19698502 (Version 1)
Quarter: 2021Q3

REPORT INFORMATION
  Report Type: Spontaneous
  Country: US (occurrence: US)
  Receive Date: 20210813
  Receipt Date: 20210813
  Transmission Date: 20211014
  Serious: No
  Sender: FDA-Public Use
  Company Number: US-MORPHOSYS US-2021-MOR001126-US

PATIENT
  Age: 68 Year
  Sex: Male
  Weight: 90.7 kg

DRUGS (1)
  1. MONJUVI [Suspect]
     Active Substance: TAFASITAMAB-CXIX
     Indication: B-CELL LYMPHOMA
     Dosage: UNK
     Route: 042

REACTIONS (3)
  - Hiccups [Not Recovered/Not Resolved]
  - Diarrhoea [Not Recovered/Not Resolved]
  - Weight decreased [Not Recovered/Not Resolved]
